FAERS Safety Report 6717932-1 (Version None)
Quarter: 2010Q2

REPORT INFORMATION
  Report Type: 
  Country: None (occurrence: None)
  Receive Date: 20100510
  Receipt Date: 20100427
  Transmission Date: 20101027
  Serious: Yes (Hospitalization)
  Sender: FDA-Public Use
  Company Number: PHHY2010JP26680

PATIENT
  Age: 69 Year
  Sex: Male

DRUGS (6)
  1. RASILEZ [Suspect]
     Indication: HYPERTENSION
     Dosage: 150 MG DAILY
     Route: 048
     Dates: start: 20100414, end: 20100426
  2. ADALAT [Concomitant]
     Indication: HYPERTENSION
     Dosage: 40 MG DAILY
     Route: 048
     Dates: start: 20100401, end: 20100426
  3. PERDIPINE [Concomitant]
     Indication: HYPERTENSION
     Dosage: 100 MG DAILY
     Route: 048
     Dates: start: 20091101, end: 20100426
  4. OLMESARTAN MEDOXOMIL [Concomitant]
     Indication: HYPERTENSION
     Dosage: 40 MG DAILY
     Route: 048
     Dates: start: 20100401, end: 20100426
  5. OLMESARTAN MEDOXOMIL [Concomitant]
     Dosage: 40 MG DAILY
     Route: 048
     Dates: start: 20100427
  6. ARTIST [Concomitant]
     Indication: HYPERTENSION
     Dosage: 20 MG DAILY

REACTIONS (2)
  - HYPOTENSION [None]
  - SHOCK [None]
